FAERS Safety Report 14671926 (Version 2)
Quarter: 2018Q2

REPORT INFORMATION
  Report Type: Other
  Country: DE (occurrence: DE)
  Receive Date: 20180323
  Receipt Date: 20180407
  Transmission Date: 20180711
  Serious: Yes (Hospitalization, Other)
  Sender: FDA-Public Use
  Company Number: DE-MACLEODS PHARMACEUTICALS US LTD-MAC2018011609

PATIENT

DRUGS (14)
  1. DICLOFENAC [Suspect]
     Active Substance: DICLOFENAC
     Indication: STILL^S DISEASE
     Dosage: 100 MG, QD, EVERY DAY
     Route: 048
     Dates: start: 20141217, end: 20150113
  2. OXCARBAZEPINE. [Concomitant]
     Active Substance: OXCARBAZEPINE
     Indication: EPILEPSY
     Dosage: 1500 MG, UNK
     Route: 048
     Dates: start: 20160908
  3. METHOTREXAT [Suspect]
     Active Substance: METHOTREXATE
     Indication: STILL^S DISEASE
     Dosage: 20 MG, UNK, EVERY WEEK
     Route: 048
     Dates: start: 20141204
  4. PERAMPANEL [Concomitant]
     Active Substance: PERAMPANEL
     Indication: STILL^S DISEASE
     Dosage: 8 MG, UNK
     Route: 048
     Dates: start: 20160303
  5. PANTOPRAZOLE [Suspect]
     Active Substance: PANTOPRAZOLE
     Indication: STILL^S DISEASE
     Dosage: 80 MG, UNK
     Route: 065
     Dates: start: 20141204
  6. ROACTEMRA [Suspect]
     Active Substance: TOCILIZUMAB
     Indication: PRODUCT USED FOR UNKNOWN INDICATION
     Dosage: 640 MG, UNK, EVERY 4 WEEKS, SOLUTION FOR INFUSION
     Route: 042
     Dates: start: 20141217
  7. OMEPRAZOLE. [Concomitant]
     Active Substance: OMEPRAZOLE
     Indication: STILL^S DISEASE
     Dosage: UNK
     Route: 048
     Dates: start: 20141217
  8. ARCOXIA [Concomitant]
     Active Substance: ETORICOXIB
     Indication: STILL^S DISEASE
     Dosage: 90 MG, QD, EVERY DAY
     Route: 048
  9. FOLIC ACID. [Concomitant]
     Active Substance: FOLIC ACID
     Indication: STILL^S DISEASE
     Dosage: 5 UNK, UNK
     Route: 048
     Dates: start: 20141204
  10. ROACTEMRA [Suspect]
     Active Substance: TOCILIZUMAB
     Indication: STILL^S DISEASE
     Dosage: 640 MG, UNK, EVERY 2 WEEKS, SOLUTION FOR INFUSION
     Route: 042
     Dates: start: 20150428
  11. TOPIRAMATE. [Concomitant]
     Active Substance: TOPIRAMATE
     Indication: EPILEPSY
     Dosage: 200 MG, QD, EVERY DAY
     Route: 048
  12. PREDNISON [Suspect]
     Active Substance: PREDNISONE
     Indication: STILL^S DISEASE
     Dosage: 7.5 MG, UNK
     Route: 065
     Dates: start: 20150428
  13. ETORICOXIB [Concomitant]
     Active Substance: ETORICOXIB
     Indication: STILL^S DISEASE
     Dosage: 90 MG, QD
     Route: 048
     Dates: start: 20160403
  14. FOLIC ACID. [Concomitant]
     Active Substance: FOLIC ACID
     Indication: PRODUCT USED FOR UNKNOWN INDICATION
     Dosage: 5 MG, UNK
     Route: 048
     Dates: start: 20141204

REACTIONS (8)
  - Otitis media [Recovered/Resolved]
  - Pneumonia aspiration [Recovered/Resolved]
  - Hand fracture [Unknown]
  - Epilepsy [Recovered/Resolved]
  - Sinusitis [Recovered/Resolved]
  - Seizure [Recovered/Resolved]
  - Craniocerebral injury [Unknown]
  - Fall [Unknown]

NARRATIVE: CASE EVENT DATE: 20150430
